FAERS Safety Report 8282855-6 (Version None)
Quarter: 2012Q2

REPORT INFORMATION
  Report Type: 
  Country: None (occurrence: None)
  Receive Date: 20120413
  Receipt Date: 20120404
  Transmission Date: 20120825
  Serious: Yes (Life-Threatening, Hospitalization)
  Sender: FDA-Public Use
  Company Number: US-ACTELION-A-NJ2011-59087

PATIENT

DRUGS (2)
  1. TRACLEER [Suspect]
     Indication: PULMONARY ARTERIAL HYPERTENSION
     Dosage: UNK
     Route: 048
     Dates: start: 20060907
  2. TRACLEER [Suspect]
     Dosage: UNK
     Route: 048
     Dates: start: 20120301

REACTIONS (6)
  - SEASONAL ALLERGY [None]
  - CONCUSSION [None]
  - SYNCOPE [None]
  - RESPIRATORY ARREST [None]
  - HYPOTENSION [None]
  - MECHANICAL VENTILATION [None]
